FAERS Safety Report 17673307 (Version 5)
Quarter: 2020Q3

REPORT INFORMATION
  Report Type: Spontaneous
  Country: AU (occurrence: AU)
  Receive Date: 20200416
  Receipt Date: 20200814
  Transmission Date: 20201102
  Serious: Yes (Death, Other)
  Sender: FDA-Public Use
  Company Number: AU-BEH-2020115822

PATIENT
  Age: 40 Year
  Sex: Male
  Weight: 93.9 kg

DRUGS (1)
  1. PRIVIGEN [Suspect]
     Active Substance: HUMAN IMMUNOGLOBULIN G
     Indication: IMMUNODEFICIENCY COMMON VARIABLE
     Dosage: 40 GRAM, QMT
     Route: 042
     Dates: start: 201911, end: 20200319

REACTIONS (9)
  - Haemolytic transfusion reaction [Fatal]
  - Pancreatitis [Fatal]
  - Presyncope [Fatal]
  - Pulmonary embolism [Fatal]
  - Hypotension [Fatal]
  - Disseminated intravascular coagulation [Unknown]
  - Multiple organ dysfunction syndrome [Fatal]
  - Hypoxia [Fatal]
  - Rectal haemorrhage [Unknown]

NARRATIVE: CASE EVENT DATE: 20200321
